FAERS Safety Report 8453007-1 (Version None)
Quarter: 2012Q2

REPORT INFORMATION
  Report Type: 
  Country: None (occurrence: None)
  Receive Date: 20120620
  Receipt Date: 20120503
  Transmission Date: 20120825
  Serious: No
  Sender: FDA-Public Use
  Company Number: US-VERTEX PHARMACEUTICALS INC.-AE-2012-006469

PATIENT
  Sex: Male
  Weight: 88.53 kg

DRUGS (6)
  1. INCIVEK [Suspect]
     Indication: HEPATITIS C
     Route: 048
     Dates: start: 20120425
  2. COPEGUS [Concomitant]
     Indication: HEPATITIS C
     Route: 048
     Dates: start: 20120425
  3. PEGASYS [Concomitant]
     Indication: HEPATITIS C
     Route: 058
     Dates: start: 20120425
  4. DIOVAN HCT [Concomitant]
     Indication: HYPERTENSION
     Route: 048
  5. COSOPT [Concomitant]
     Indication: EYE DISORDER
  6. TRAVATAN [Concomitant]
     Indication: EYE DISORDER

REACTIONS (2)
  - HAEMORRHOIDS [None]
  - ANORECTAL DISCOMFORT [None]
